FAERS Safety Report 9033180 (Version 3)
Quarter: 2013Q1

REPORT INFORMATION
  Report Type: Spontaneous
  Country: US (occurrence: US)
  Receive Date: 20130128
  Receipt Date: 20130215
  Transmission Date: 20140127
  Serious: Yes (Other)
  Sender: FDA-Public Use
  Company Number: US-AMGEN-USASP2013004478

PATIENT
  Age: 57 Year
  Sex: Female
  Weight: 71.66 kg

DRUGS (2)
  1. ENBREL [Suspect]
     Indication: RHEUMATOID ARTHRITIS
     Dosage: 25 MG, 2 TIMES/WK
     Route: 058
     Dates: start: 20070323, end: 20130118
  2. METHOTREXATE [Suspect]
     Dosage: 25 MG, 4 TIMES/WK
     Dates: start: 20070404

REACTIONS (4)
  - Arthralgia [Recovered/Resolved]
  - Joint swelling [Recovered/Resolved]
  - Bunion [Not Recovered/Not Resolved]
  - Herpes zoster [Recovered/Resolved]
